FAERS Safety Report 6381929-4 (Version None)
Quarter: 2009Q3

REPORT INFORMATION
  Report Type: 
  Country: None (occurrence: None)
  Receive Date: 20090925
  Receipt Date: 20090915
  Transmission Date: 20100115
  Serious: Yes (Hospitalization)
  Sender: FDA-Public Use
  Company Number: 2009-03459

PATIENT
  Age: 52 Year
  Sex: Female
  Weight: 91.1 kg

DRUGS (11)
  1. VELCADE [Suspect]
     Indication: MULTIPLE MYELOMA
     Dosage: 0.7 MG/M2, INTRAVENOUS
     Route: 042
     Dates: start: 20081020, end: 20090817
  2. DOXIL [Suspect]
     Indication: MULTIPLE MYELOMA
     Dosage: 30 MG/M2, INTRAVENOUS
     Route: 042
     Dates: start: 20081023, end: 20090820
  3. DEXAMETHASONE TAB [Suspect]
     Indication: MULTIPLE MYELOMA
     Dosage: 20 MG, ORAL
     Route: 048
     Dates: start: 20081020, end: 20090820
  4. NEURONTIN [Concomitant]
  5. LACTULOSE [Concomitant]
  6. DOXYCYCLINE [Concomitant]
  7. REGLAN [Concomitant]
  8. COLACE (DOCUSATE SODIUM) [Concomitant]
  9. METHYLPREDNISOLONE [Concomitant]
  10. DOXYCYCLINE [Concomitant]
  11. COUMADIN [Concomitant]

REACTIONS (4)
  - ABDOMINAL PAIN [None]
  - INFECTION [None]
  - INTERNATIONAL NORMALISED RATIO INCREASED [None]
  - PYELONEPHRITIS [None]
